FAERS Safety Report 13182975 (Version 2)
Quarter: 2017Q2

REPORT INFORMATION
  Report Type: Spontaneous
  Country: IT (occurrence: IT)
  Receive Date: 20170203
  Receipt Date: 20170424
  Transmission Date: 20170830
  Serious: Yes (Hospitalization, Other)
  Sender: FDA-Public Use
  Company Number: IT-PFIZER INC-2017043999

PATIENT
  Age: 69 Year
  Sex: Male
  Weight: 74 kg

DRUGS (1)
  1. SUTENT [Suspect]
     Active Substance: SUNITINIB MALATE
     Dosage: 50 MG, DAILY
     Route: 048
     Dates: start: 20151105, end: 20170103

REACTIONS (3)
  - Paraesthesia [Recovered/Resolved]
  - Subarachnoid haemorrhage [Recovered/Resolved]
  - Vascular encephalopathy [Recovered/Resolved]

NARRATIVE: CASE EVENT DATE: 20170103
